FAERS Safety Report 16353934 (Version 2)
Quarter: 2019Q3

REPORT INFORMATION
  Report Type: Spontaneous
  Country: IT (occurrence: IT)
  Receive Date: 20190524
  Receipt Date: 20190902
  Transmission Date: 20191004
  Serious: Yes (Other)
  Sender: FDA-Public Use
  Company Number: PHHY2019IT116658

PATIENT
  Age: 47 Year
  Sex: Male
  Weight: 56 kg

DRUGS (1)
  1. LEVOFLOXACIN. [Suspect]
     Active Substance: LEVOFLOXACIN
     Indication: PHARYNGITIS
     Dosage: 500 MG, QD
     Route: 065
     Dates: start: 20170518, end: 20170524

REACTIONS (3)
  - Tendonitis [Recovered/Resolved with Sequelae]
  - Plantar fasciitis [Recovered/Resolved with Sequelae]
  - Neuropathy peripheral [Recovered/Resolved with Sequelae]

NARRATIVE: CASE EVENT DATE: 20170525
